FAERS Safety Report 26152083 (Version 1)
Quarter: 2025Q4

REPORT INFORMATION
  Report Type: Spontaneous
  Country: US (occurrence: US)
  Receive Date: 20251214
  Receipt Date: 20251214
  Transmission Date: 20260117
  Serious: No
  Sender: ELI LILLY AND COMPANY
  Company Number: US-ELI_LILLY_AND_COMPANY-US202512015477

PATIENT
  Age: 36 Year
  Sex: Male

DRUGS (8)
  1. ZEPBOUND [Suspect]
     Active Substance: TIRZEPATIDE
     Indication: Weight control
     Dosage: 15 MG, UNKNOWN
     Route: 065
  2. ZEPBOUND [Suspect]
     Active Substance: TIRZEPATIDE
     Indication: Weight control
     Dosage: 15 MG, UNKNOWN
     Route: 065
  3. ZEPBOUND [Suspect]
     Active Substance: TIRZEPATIDE
     Indication: Weight control
     Dosage: 15 MG, UNKNOWN
     Route: 065
  4. ZEPBOUND [Suspect]
     Active Substance: TIRZEPATIDE
     Indication: Weight control
     Dosage: 15 MG, UNKNOWN
     Route: 065
  5. ZEPBOUND [Suspect]
     Active Substance: TIRZEPATIDE
     Indication: Glucose tolerance impaired
  6. ZEPBOUND [Suspect]
     Active Substance: TIRZEPATIDE
     Indication: Glucose tolerance impaired
  7. ZEPBOUND [Suspect]
     Active Substance: TIRZEPATIDE
     Indication: Glucose tolerance impaired
  8. ZEPBOUND [Suspect]
     Active Substance: TIRZEPATIDE
     Indication: Glucose tolerance impaired

REACTIONS (1)
  - Accidental overdose [Unknown]

NARRATIVE: CASE EVENT DATE: 20251206
